FAERS Safety Report 6373589-3 (Version None)
Quarter: 2009Q3

REPORT INFORMATION
  Report Type: 
  Country: None (occurrence: None)
  Receive Date: 20090924
  Receipt Date: 20090917
  Transmission Date: 20100115
  Serious: Yes (Other)
  Sender: FDA-Public Use
  Company Number: US-JNJFOC-20090905823

PATIENT
  Sex: Male
  Weight: 154.22 kg

DRUGS (3)
  1. DURAGESIC-100 [Suspect]
     Indication: BACK PAIN
     Route: 062
  2. FLOMAX [Concomitant]
     Route: 048
  3. CYMBALTA [Concomitant]
     Route: 048

REACTIONS (7)
  - BEDRIDDEN [None]
  - DECREASED APPETITE [None]
  - DRUG INEFFECTIVE [None]
  - MALAISE [None]
  - PAIN [None]
  - WEIGHT DECREASED [None]
  - WRONG TECHNIQUE IN DRUG USAGE PROCESS [None]
